FAERS Safety Report 7122392-5 (Version None)
Quarter: 2010Q4

REPORT INFORMATION
  Report Type: 
  Country: None (occurrence: None)
  Receive Date: 20101122
  Receipt Date: 20101122
  Transmission Date: 20110411
  Serious: Yes (Hospitalization)
  Sender: FDA-Public Use
  Company Number: None

PATIENT
  Age: 90 Year
  Sex: Male
  Weight: 78 kg

DRUGS (2)
  1. AMITRIPTYLINE HCL [Suspect]
     Indication: PAIN
     Dosage: 20 MG AT BEDTIME PO
     Route: 048
     Dates: start: 20100624, end: 20101115
  2. AMITRIPTYLINE HCL [Suspect]
     Indication: PAIN
     Dosage: 10 MG AT BEDTIME PO
     Route: 048
     Dates: start: 20080117, end: 20100624

REACTIONS (3)
  - ANTICHOLINERGIC SYNDROME [None]
  - PARANOIA [None]
  - PSYCHOTIC DISORDER [None]
